FAERS Safety Report 24058434 (Version 3)
Quarter: 2024Q3

REPORT INFORMATION
  Report Type: Spontaneous
  Country: CA (occurrence: CA)
  Receive Date: 20240708
  Receipt Date: 20240717
  Transmission Date: 20241016
  Serious: Yes (Hospitalization, Other)
  Sender: CELLTRION
  Company Number: CA-PFIZER INC-202400203740

PATIENT

DRUGS (3)
  1. INFLECTRA [Suspect]
     Active Substance: INFLIXIMAB-DYYB
     Indication: Crohn^s disease
     Dosage: 10 MG/KG OR 600 MG Q 0, 2, 6 WEEKS, THEN EVERY 8 WEEKS
     Route: 042
     Dates: start: 20190308, end: 20190315
  2. INFLECTRA [Suspect]
     Active Substance: INFLIXIMAB-DYYB
     Dosage: 600 MG (7.5 MG/KG), (ROUNDED UP TO NEAREST 100) Q 6 WEEKS, THEN EVERY 8 WEEKS
     Route: 042
     Dates: start: 20190403
  3. INFLECTRA [Suspect]
     Active Substance: INFLIXIMAB-DYYB
     Dosage: 600 MG, EVERY 8 WEEKS
     Route: 042
     Dates: start: 20240425

REACTIONS (4)
  - Small intestinal stenosis [Unknown]
  - Small intestinal obstruction [Unknown]
  - Ear congestion [Unknown]
  - Ear infection [Unknown]

NARRATIVE: CASE EVENT DATE: 20240101
